FAERS Safety Report 18044097 (Version 1)
Quarter: 2020Q3

REPORT INFORMATION
  Report Type: Spontaneous
  Country: US (occurrence: US)
  Receive Date: 20200719
  Receipt Date: 20200719
  Transmission Date: 20201103
  Serious: Yes (Other)
  Sender: FDA-Public Use
  Company Number: None

PATIENT
  Age: 31 Year
  Sex: Female
  Weight: 55.34 kg

DRUGS (1)
  1. PARAGARD T 380A [Suspect]
     Active Substance: COPPER

REACTIONS (6)
  - Ectopic pregnancy [None]
  - Menorrhagia [None]
  - Migraine [None]
  - Abortion spontaneous [None]
  - Muscle spasms [None]
  - Dysmenorrhoea [None]

NARRATIVE: CASE EVENT DATE: 20191207
